FAERS Safety Report 13834122 (Version 1)
Quarter: 2017Q3

REPORT INFORMATION
  Report Type: Spontaneous
  Country: US (occurrence: US)
  Receive Date: 20170804
  Receipt Date: 20170804
  Transmission Date: 20171127
  Serious: Yes (Other)
  Sender: FDA-Public Use
  Company Number: None

PATIENT
  Age: 80 Year
  Sex: Male
  Weight: 108.96 kg

DRUGS (9)
  1. FINASTERIDE. [Concomitant]
     Active Substance: FINASTERIDE
  2. HUMULIN N [Concomitant]
     Active Substance: INSULIN HUMAN
  3. WARFARIN [Concomitant]
     Active Substance: WARFARIN
  4. FLUOROURACIL CREAM [Suspect]
     Active Substance: FLUOROURACIL
     Indication: RECURRENT CANCER
     Dosage: 40 G TUBE 5% CRE SPE, TWICE DAILY FOR 21 DAYS, ON SKIN
     Route: 061
     Dates: start: 20170606, end: 20170612
  5. LOSARTAN. [Concomitant]
     Active Substance: LOSARTAN
  6. FLUOROURACIL CREAM [Suspect]
     Active Substance: FLUOROURACIL
     Indication: PROPHYLAXIS
     Dosage: 40 G TUBE 5% CRE SPE, TWICE DAILY FOR 21 DAYS, ON SKIN
     Route: 061
     Dates: start: 20170606, end: 20170612
  7. GLUCOSAMINE [Concomitant]
     Active Substance: GLUCOSAMINE
  8. TAMSULOSIN [Concomitant]
     Active Substance: TAMSULOSIN
  9. HUMALOG [Concomitant]
     Active Substance: INSULIN LISPRO

REACTIONS (3)
  - Testicular swelling [None]
  - White blood cell count increased [None]
  - Drug hypersensitivity [None]

NARRATIVE: CASE EVENT DATE: 20170611
